FAERS Safety Report 4533710-6 (Version None)
Quarter: 2004Q4

REPORT INFORMATION
  Report Type: 
  Country: None (occurrence: None)
  Receive Date: 20041221
  Receipt Date: 20041126
  Transmission Date: 20050328
  Serious: No
  Sender: FDA-Public Use
  Company Number: JP-GLAXOSMITHKLINE-B0274108B

PATIENT
  Age: 47 Year
  Sex: Male

DRUGS (5)
  1. LAMIVUDINE [Suspect]
     Indication: HIV INFECTION
     Dosage: 300MG PER DAY
     Route: 048
     Dates: start: 19990318
  2. STAVUDINE [Concomitant]
     Indication: HIV INFECTION
     Dosage: 80MG PER DAY
     Route: 048
     Dates: start: 19990318
  3. NELFINAVIR [Concomitant]
     Indication: HIV INFECTION
     Dosage: 2250MG PER DAY
     Route: 048
     Dates: start: 19990324
  4. COTRIM [Concomitant]
     Indication: INFECTION PROPHYLAXIS
     Dates: start: 20010401
  5. GLYBURIDE [Concomitant]
     Indication: DIABETES MELLITUS
     Dosage: 2.5MG PER DAY
     Route: 048
     Dates: start: 20010401

REACTIONS (2)
  - BLOOD TRIGLYCERIDES INCREASED [None]
  - DIABETES MELLITUS [None]
